FAERS Safety Report 5290657-8 (Version None)
Quarter: 2007Q2

REPORT INFORMATION
  Report Type: 
  Country: None (occurrence: None)
  Receive Date: 20070405
  Receipt Date: 20070405
  Transmission Date: 20071010
  Serious: Yes (Hospitalization)
  Sender: FDA-Public Use
  Company Number: None

PATIENT
  Age: 51 Year
  Sex: Male

DRUGS (9)
  1. VERSED [Suspect]
     Indication: DIAGNOSTIC PROCEDURE
     Dosage: 3MG  IV  X 1
     Route: 042
     Dates: start: 20070110
  2. VERSED [Suspect]
     Indication: SEDATION
     Dosage: 3MG  IV  X 1
     Route: 042
     Dates: start: 20070110
  3. FENTANYL [Suspect]
     Dosage: 150 MCG IV X 1
     Route: 042
  4. PREDNISONE TAB [Concomitant]
  5. VIT E [Concomitant]
  6. ASPIRIN [Concomitant]
  7. COLCHICINE [Concomitant]
  8. FLUDROCORTISONE ACETATE [Concomitant]
  9. NEPHROCAPS [Concomitant]

REACTIONS (4)
  - DYSPNOEA [None]
  - LETHARGY [None]
  - LOSS OF CONSCIOUSNESS [None]
  - MENTAL STATUS CHANGES [None]
